FAERS Safety Report 7927841-8 (Version None)
Quarter: 2011Q4

REPORT INFORMATION
  Report Type: 
  Country: None (occurrence: None)
  Receive Date: 20111118
  Receipt Date: 20111118
  Transmission Date: 20120403
  Serious: Yes (Hospitalization, Other)
  Sender: FDA-Public Use
  Company Number: None

PATIENT
  Age: 32 Year
  Sex: Female
  Weight: 71.667 kg

DRUGS (1)
  1. MIRENA [Suspect]
     Indication: CONTRACEPTION
     Dates: start: 20090123, end: 20111111

REACTIONS (7)
  - DYSPNOEA [None]
  - NAUSEA [None]
  - PELVIC PAIN [None]
  - DEVICE DISLOCATION [None]
  - ABDOMINAL PAIN LOWER [None]
  - PYREXIA [None]
  - ASTHENIA [None]
